FAERS Safety Report 5236391-1 (Version None)
Quarter: 2007Q1

REPORT INFORMATION
  Report Type: 
  Country: None (occurrence: None)
  Receive Date: 20070212
  Receipt Date: 20070202
  Transmission Date: 20070707
  Serious: Yes (Hospitalization)
  Sender: FDA-Public Use
  Company Number: DE-PFIZER INC-2007009161

PATIENT
  Age: 22 Year
  Sex: Female
  Weight: 54 kg

DRUGS (6)
  1. GENOTROPIN [Suspect]
     Indication: HYPOPITUITARISM
     Route: 058
  2. LEVOTHYROXINE SODIUM [Concomitant]
  3. HYDROCORTISON [Concomitant]
     Dates: start: 19960101
  4. MINIRIN ^AVENTIS PHARMA^ [Concomitant]
     Dates: start: 19960530
  5. CYCLO-PROGYNON [Concomitant]
     Dates: start: 20000101
  6. MICTONORM [Concomitant]

REACTIONS (1)
  - CEREBRAL CYST [None]
